FAERS Safety Report 19705235 (Version 1)
Quarter: 2021Q3

REPORT INFORMATION
  Report Type: Spontaneous
  Country: US (occurrence: US)
  Receive Date: 20210816
  Receipt Date: 20210816
  Transmission Date: 20211014
  Serious: No
  Sender: FDA-Public Use
  Company Number: None

PATIENT
  Age: 59 Year
  Sex: Female
  Weight: 94.5 kg

DRUGS (13)
  1. DYCICLOMEN [Concomitant]
  2. MELOXICAM. [Concomitant]
     Active Substance: MELOXICAM
  3. WELLBUTRIN [Concomitant]
     Active Substance: BUPROPION HYDROCHLORIDE
  4. ABILIFY [Suspect]
     Active Substance: ARIPIPRAZOLE
     Indication: BIPOLAR DISORDER
     Dosage: ?          QUANTITY:1 TABLET(S);?
     Route: 048
  5. GABAPENTIN. [Concomitant]
     Active Substance: GABAPENTIN
  6. ARAVA [Concomitant]
     Active Substance: LEFLUNOMIDE
  7. HAIR AND NAIL TABLET [Concomitant]
  8. ABILIFY [Suspect]
     Active Substance: ARIPIPRAZOLE
     Indication: DEPRESSION
     Dosage: ?          QUANTITY:1 TABLET(S);?
     Route: 048
  9. SYNTHROID [Concomitant]
     Active Substance: LEVOTHYROXINE SODIUM
  10. ROPENAROL [Concomitant]
  11. LAMICTAL [Concomitant]
     Active Substance: LAMOTRIGINE
  12. XANAX [Concomitant]
     Active Substance: ALPRAZOLAM
  13. IMMUNE SUPPORT [Concomitant]

REACTIONS (2)
  - Gambling disorder [None]
  - Weight increased [None]

NARRATIVE: CASE EVENT DATE: 20140101
